FAERS Safety Report 13412317 (Version 2)
Quarter: 2017Q4

REPORT INFORMATION
  Report Type: Spontaneous
  Country: US (occurrence: US)
  Receive Date: 20170406
  Receipt Date: 20171123
  Transmission Date: 20180320
  Serious: No
  Sender: FDA-Public Use
  Company Number: US-JNJFOC-20170308146

PATIENT
  Sex: Male

DRUGS (18)
  1. RISPERIDONE. [Suspect]
     Active Substance: RISPERIDONE
     Indication: AUTISM SPECTRUM DISORDER
     Dosage: IN VARYING DOSES OF 0.25, 0.5 MG, 1 MG AND 2 MG
     Route: 048
     Dates: start: 20081015, end: 20140116
  2. RISPERDAL [Suspect]
     Active Substance: RISPERIDONE
     Indication: MENTAL DISORDER
     Route: 048
     Dates: start: 201401, end: 20140129
  3. RISPERIDONE. [Suspect]
     Active Substance: RISPERIDONE
     Indication: OBSESSIVE-COMPULSIVE DISORDER
     Route: 048
     Dates: start: 201401, end: 20140129
  4. RISPERDAL [Suspect]
     Active Substance: RISPERIDONE
     Indication: PHOBIA
     Route: 048
     Dates: start: 201401, end: 20140129
  5. RISPERDAL [Suspect]
     Active Substance: RISPERIDONE
     Indication: PHOBIA
     Route: 048
     Dates: start: 20081015, end: 20140114
  6. RISPERDAL [Suspect]
     Active Substance: RISPERIDONE
     Indication: OBSESSIVE-COMPULSIVE DISORDER
     Route: 048
     Dates: start: 2006, end: 2008
  7. RISPERDAL [Suspect]
     Active Substance: RISPERIDONE
     Indication: OBSESSIVE-COMPULSIVE DISORDER
     Route: 048
     Dates: start: 20081015, end: 20140114
  8. RISPERDAL [Suspect]
     Active Substance: RISPERIDONE
     Indication: PHOBIA
     Route: 048
     Dates: start: 2006, end: 2008
  9. RISPERDAL [Suspect]
     Active Substance: RISPERIDONE
     Indication: AUTISM SPECTRUM DISORDER
     Route: 048
     Dates: start: 20081015, end: 20140114
  10. RISPERIDONE. [Suspect]
     Active Substance: RISPERIDONE
     Indication: PHOBIA
     Dosage: IN VARYING DOSES OF 0.25, 0.5 MG, 1 MG AND 2 MG
     Route: 048
     Dates: start: 20081015, end: 20140116
  11. RISPERIDONE. [Suspect]
     Active Substance: RISPERIDONE
     Indication: OBSESSIVE-COMPULSIVE DISORDER
     Dosage: IN VARYING DOSES OF 0.25, 0.5 MG, 1 MG AND 2 MG
     Route: 048
     Dates: start: 20081015, end: 20140116
  12. RISPERDAL [Suspect]
     Active Substance: RISPERIDONE
     Indication: OBSESSIVE-COMPULSIVE DISORDER
     Route: 048
     Dates: start: 201401, end: 20140129
  13. RISPERDAL [Suspect]
     Active Substance: RISPERIDONE
     Indication: AUTISM SPECTRUM DISORDER
     Route: 048
     Dates: start: 2006, end: 2008
  14. RISPERIDONE. [Suspect]
     Active Substance: RISPERIDONE
     Indication: PHOBIA
     Route: 048
     Dates: start: 201401, end: 20140129
  15. RISPERDAL [Suspect]
     Active Substance: RISPERIDONE
     Indication: MENTAL DISORDER
     Route: 048
     Dates: start: 20081015, end: 20140114
  16. RISPERDAL [Suspect]
     Active Substance: RISPERIDONE
     Indication: MENTAL DISORDER
     Route: 048
     Dates: start: 2006, end: 2008
  17. RISPERDAL [Suspect]
     Active Substance: RISPERIDONE
     Indication: AUTISM SPECTRUM DISORDER
     Route: 048
     Dates: start: 201401, end: 20140129
  18. RISPERIDONE. [Suspect]
     Active Substance: RISPERIDONE
     Indication: AUTISM SPECTRUM DISORDER
     Route: 048
     Dates: start: 201401, end: 20140129

REACTIONS (3)
  - Gynaecomastia [Unknown]
  - Tremor [Unknown]
  - Emotional disorder [Unknown]

NARRATIVE: CASE EVENT DATE: 2013
